FAERS Safety Report 7811652-8 (Version None)
Quarter: 2011Q4

REPORT INFORMATION
  Report Type: 
  Country: None (occurrence: None)
  Receive Date: 20111013
  Receipt Date: 20111004
  Transmission Date: 20120403
  Serious: Yes (Death, Hospitalization)
  Sender: FDA-Public Use
  Company Number: ES-CELGENEUS-144-21880-11091745

PATIENT
  Sex: Female

DRUGS (14)
  1. DIGOXIN [Concomitant]
  2. CYCLOPHOSPHAMIDE [Suspect]
     Indication: MULTIPLE MYELOMA
     Route: 048
     Dates: start: 20110727, end: 20110816
  3. DIOSMIN [Concomitant]
     Route: 065
  4. PRIMPERAN TAB [Concomitant]
     Indication: ANTIEMETIC SUPPORTIVE CARE
     Dosage: 1 AMPOULE
     Route: 041
     Dates: start: 20110817, end: 20110817
  5. SINEM [Concomitant]
     Indication: PARKINSON'S DISEASE
     Dosage: 100/25
     Route: 048
     Dates: start: 20110816, end: 20110817
  6. PRIMPERAN TAB [Concomitant]
     Route: 041
  7. REVLIMID [Suspect]
     Indication: MULTIPLE MYELOMA
     Dosage: 15 MILLIGRAM
     Route: 048
     Dates: start: 20110727, end: 20110817
  8. DIGOXIN [Concomitant]
     Indication: ARRHYTHMIA
     Dosage: .25 MILLIGRAM
     Route: 048
     Dates: start: 20110816, end: 20110817
  9. INDAPAMID [Concomitant]
     Indication: HYPERTENSION
     Route: 065
  10. DIOSMIN [Concomitant]
  11. VALIUM [Concomitant]
     Indication: ANXIETY
     Route: 041
     Dates: start: 20110816, end: 20110817
  12. ASPIRIN [Concomitant]
     Indication: THROMBOSIS PROPHYLAXIS
     Route: 065
  13. PREDNISONE [Suspect]
     Indication: MULTIPLE MYELOMA
     Route: 048
     Dates: start: 20110727, end: 20110816
  14. OMEPRAZOLE [Concomitant]
     Indication: PROPHYLAXIS
     Route: 048
     Dates: start: 20110814, end: 20110817

REACTIONS (2)
  - INTESTINAL ISCHAEMIA [None]
  - PERIPHERAL ISCHAEMIA [None]
